FAERS Safety Report 14704585 (Version 3)
Quarter: 2018Q2

REPORT INFORMATION
  Report Type: Spontaneous
  Country: TR (occurrence: TR)
  Receive Date: 20180402
  Receipt Date: 20180606
  Transmission Date: 20180711
  Serious: Yes (Other)
  Sender: FDA-Public Use
  Company Number: TR-PFIZER INC-2018129009

PATIENT
  Age: 21 Year
  Sex: Male

DRUGS (6)
  1. DOXORUBICINE [Suspect]
     Active Substance: DOXORUBICIN
     Indication: ACUTE MYELOID LEUKAEMIA
     Dosage: UNK (TWICE DOSES)
  2. CYTARABINE. [Suspect]
     Active Substance: CYTARABINE
     Indication: ACUTE MYELOID LEUKAEMIA
     Dosage: UNK (TWICE DOSES)
  3. DOXORUBICINE [Suspect]
     Active Substance: DOXORUBICIN
     Dosage: UNK, CYCLIC
  4. CYTARABINE. [Suspect]
     Active Substance: CYTARABINE
     Dosage: UNK, CYCLIC
  5. CYTARABINE. [Suspect]
     Active Substance: CYTARABINE
     Dosage: 100 MG/M2, CYCLIC (DOSE WAS INCREASED)
  6. DOXORUBICINE [Suspect]
     Active Substance: DOXORUBICIN
     Dosage: UNK, CYCLIC

REACTIONS (2)
  - Febrile neutropenia [Unknown]
  - Bone marrow failure [Unknown]
